FAERS Safety Report 22083059 (Version 1)
Quarter: 2023Q1

REPORT INFORMATION
  Report Type: Spontaneous
  Country: AU (occurrence: AU)
  Receive Date: 20230310
  Receipt Date: 20230310
  Transmission Date: 20230418
  Serious: Yes (Hospitalization, Other)
  Sender: FDA-Public Use
  Company Number: AU-KOREA IPSEN Pharma-2023-03604

PATIENT
  Age: 33 Year
  Sex: Female

DRUGS (1)
  1. DYSPORT [Suspect]
     Active Substance: ABOBOTULINUMTOXINA
     Indication: Skin wrinkling
     Route: 065

REACTIONS (20)
  - Asthenia [Not Recovered/Not Resolved]
  - Erythema [Not Recovered/Not Resolved]
  - Eye pain [Not Recovered/Not Resolved]
  - Facial paralysis [Not Recovered/Not Resolved]
  - Injection site inflammation [Not Recovered/Not Resolved]
  - Injection site pain [Not Recovered/Not Resolved]
  - Migraine [Not Recovered/Not Resolved]
  - Nausea [Not Recovered/Not Resolved]
  - Orbital swelling [Not Recovered/Not Resolved]
  - Pain [Not Recovered/Not Resolved]
  - Periorbital cellulitis [Not Recovered/Not Resolved]
  - Photophobia [Not Recovered/Not Resolved]
  - Swelling [Not Recovered/Not Resolved]
  - Visual impairment [Not Recovered/Not Resolved]
  - Chest pain [Unknown]
  - Myalgia [Unknown]
  - Malaise [Unknown]
  - Back pain [Unknown]
  - Arthralgia [Unknown]
  - Eye irritation [Not Recovered/Not Resolved]

NARRATIVE: CASE EVENT DATE: 20220818
